FAERS Safety Report 4356581-X (Version None)
Quarter: 2004Q2

REPORT INFORMATION
  Report Type: 
  Country: None (occurrence: None)
  Receive Date: 20040507
  Receipt Date: 20040426
  Transmission Date: 20050107
  Serious: Yes (Hospitalization)
  Sender: FDA-Public Use
  Company Number: US-JNJFOC-20040405543

PATIENT
  Age: 63 Year
  Sex: Female
  Weight: 81.6475 kg

DRUGS (12)
  1. INFLIXIMAB (INFLIXIMAB, RECOMBINANT) LYOPHILIZED POWDER [Suspect]
     Indication: RHEUMATOID ARTHRITIS
     Dosage: INTRAVENOUS
     Route: 042
     Dates: start: 20010823, end: 20030925
  2. NITROGLYCERINE (GLYCERYL TRINITRATE) PATCH [Concomitant]
  3. FLEXTRA (ALL OTHER THERAPEUTIC PRODUCTS) [Concomitant]
  4. LASIX [Concomitant]
  5. PROTONIX [Concomitant]
  6. CLONIDINE [Concomitant]
  7. LEVOXYL [Concomitant]
  8. ACTOS (PIOGLITAZONE) [Concomitant]
  9. ASPIRIN [Concomitant]
  10. ZESTRIL [Concomitant]
  11. LEXAPRO (ALL OTHER THERAPEUTIC PRODUCTS) [Concomitant]
  12. HUMULIN INSULIN (INSULIN HUMAN ZINC SUSPENSION) [Concomitant]

REACTIONS (6)
  - ASTHENIA [None]
  - BLOOD GLUCOSE DECREASED [None]
  - CHEST PAIN [None]
  - CONTUSION [None]
  - PLEURAL EFFUSION [None]
  - ROAD TRAFFIC ACCIDENT [None]
